FAERS Safety Report 6084715-8 (Version None)
Quarter: 2009Q1

REPORT INFORMATION
  Report Type: 
  Country: None (occurrence: None)
  Receive Date: 20090217
  Receipt Date: 20090205
  Transmission Date: 20090719
  Serious: Yes (Death)
  Sender: FDA-Public Use
  Company Number: 1000003933

PATIENT
  Age: 72 Year
  Sex: Male

DRUGS (8)
  1. ESCITALOPRAM [Suspect]
     Dosage: 10 MG (10 MG, 1 IN 1 D) ,ORAL
     Route: 048
     Dates: end: 20090125
  2. TINEAFIN (TABLETS) [Suspect]
     Indication: FUNGAL INFECTION
     Dosage: 250 MG (250 MG, 1 IN 1 D) ,ORAL
     Route: 048
     Dates: start: 20090115, end: 20090125
  3. SIFROL (TABLETS) [Concomitant]
  4. MOTILIUM [Concomitant]
  5. MADOPAR (TABLETS) [Concomitant]
  6. NEBILET (TABLETS) [Concomitant]
  7. LYRINEL OROS (TABLETS) [Concomitant]
  8. SEROQUEL [Concomitant]

REACTIONS (2)
  - GASTROINTESTINAL HAEMORRHAGE [None]
  - HYPOVOLAEMIC SHOCK [None]
